FAERS Safety Report 18494007 (Version 1)
Quarter: 2020Q4

REPORT INFORMATION
  Report Type: Spontaneous
  Country: RO (occurrence: RO)
  Receive Date: 20201111
  Receipt Date: 20201111
  Transmission Date: 20210114
  Serious: Yes (Other)
  Sender: FDA-Public Use
  Company Number: RO-JNJFOC-20201103446

PATIENT
  Age: 38 Year
  Sex: Female

DRUGS (5)
  1. REMICADE [Suspect]
     Active Substance: INFLIXIMAB
     Route: 042
     Dates: start: 201602
  2. REMICADE [Suspect]
     Active Substance: INFLIXIMAB
     Dosage: 0,2,6 WEEKS
     Route: 042
     Dates: start: 2010
  3. AZATHIOPRINE. [Concomitant]
     Active Substance: AZATHIOPRINE
     Indication: COLITIS ULCERATIVE
     Dosage: 2.5 MG/KG
     Dates: start: 201008, end: 201605
  4. ADALIMUMAB [Concomitant]
     Active Substance: ADALIMUMAB
     Dosage: UNK (REPORTED AS FOR 6 MONTHS)
     Dates: start: 201602, end: 201609
  5. REMICADE [Suspect]
     Active Substance: INFLIXIMAB
     Indication: COLITIS ULCERATIVE
     Route: 042
     Dates: start: 201008

REACTIONS (11)
  - Arthritis [Unknown]
  - Synovitis [Unknown]
  - Condition aggravated [Unknown]
  - DNA antibody positive [Unknown]
  - Drug specific antibody [Unknown]
  - Histone antibody positive [Unknown]
  - Off label use [Unknown]
  - Arthralgia [Unknown]
  - Lupus-like syndrome [Unknown]
  - Drug trough level [Unknown]
  - Joint effusion [Unknown]

NARRATIVE: CASE EVENT DATE: 201008
